FAERS Safety Report 19278251 (Version 2)
Quarter: 2021Q3

REPORT INFORMATION
  Report Type: Spontaneous
  Country: US (occurrence: US)
  Receive Date: 20210520
  Receipt Date: 20210706
  Transmission Date: 20211014
  Serious: No
  Sender: FDA-Public Use
  Company Number: US-ASTRAZENECA-2021A442805

PATIENT
  Age: 26249 Day
  Sex: Female

DRUGS (2)
  1. BYDUREON [Concomitant]
     Active Substance: EXENATIDE
     Indication: TYPE 2 DIABETES MELLITUS
  2. BYDUREON BCISE [Suspect]
     Active Substance: EXENATIDE
     Indication: TYPE 2 DIABETES MELLITUS
     Route: 058
     Dates: start: 20210513

REACTIONS (3)
  - Intentional device misuse [Unknown]
  - Device leakage [Unknown]
  - Injection site injury [Unknown]

NARRATIVE: CASE EVENT DATE: 20210513
